FAERS Safety Report 8514668-1 (Version None)
Quarter: 2012Q3

REPORT INFORMATION
  Report Type: 
  Country: None (occurrence: None)
  Receive Date: 20120711
  Receipt Date: 20120711
  Transmission Date: 20120928
  Serious: Yes (Hospitalization)
  Sender: FDA-Public Use
  Company Number: None

PATIENT
  Sex: Female
  Weight: 62.1428 kg

DRUGS (10)
  1. SGT-53 SYNERGENE [Suspect]
     Indication: BREAST CANCER METASTATIC
     Dosage: 2.4MG DNA PER INFUSION
     Dates: start: 20120626
  2. SGT-53 SYNERGENE [Suspect]
     Indication: BREAST CANCER METASTATIC
     Dosage: 2.4MG DNA PER INFUSION
     Dates: start: 20120622
  3. SGT-53 SYNERGENE [Suspect]
     Indication: BREAST CANCER METASTATIC
     Dosage: 2.4MG DNA PER INFUSION
     Dates: start: 20120619
  4. MIRALAX [Concomitant]
  5. CASCARA TAB [Concomitant]
  6. DILAUDID [Suspect]
     Indication: BREAST CANCER METASTATIC
     Dosage: VARYING DOSES PCA PUMP
  7. DILAUDID (BASAL AND BOLUS) [Concomitant]
  8. HALDOL [Concomitant]
  9. SENEKOT-S [Concomitant]
  10. VALIUM [Concomitant]

REACTIONS (6)
  - RESTLESSNESS [None]
  - AGITATION [None]
  - DELIRIUM [None]
  - CONFUSIONAL STATE [None]
  - METASTASES TO CENTRAL NERVOUS SYSTEM [None]
  - PYREXIA [None]
